FAERS Safety Report 7672133-8 (Version None)
Quarter: 2011Q3

REPORT INFORMATION
  Report Type: 
  Country: None (occurrence: None)
  Receive Date: 20110809
  Receipt Date: 20110805
  Transmission Date: 20111222
  Serious: Yes (Other)
  Sender: FDA-Public Use
  Company Number: IT-PFIZER INC-2011175426

PATIENT
  Age: 44 Year
  Sex: Female

DRUGS (1)
  1. MEDROL [Suspect]
     Indication: URTICARIA
     Dosage: 16 MG, 1X/DAY
     Route: 048
     Dates: start: 20110216, end: 20110224

REACTIONS (3)
  - HYPERGLYCAEMIA [None]
  - VOMITING [None]
  - SYNCOPE [None]
